FAERS Safety Report 11294953 (Version 1)
Quarter: 2015Q3

REPORT INFORMATION
  Report Type: Spontaneous
  Country: US (occurrence: US)
  Receive Date: 20150723
  Receipt Date: 20150723
  Transmission Date: 20151125
  Serious: No
  Sender: FDA-Public Use
  Company Number: US-009507513-1507USA005087

PATIENT
  Sex: Male

DRUGS (1)
  1. BELSOMRA [Suspect]
     Active Substance: SUVOREXANT
     Indication: INSOMNIA
     Dosage: TWO 10MG TABLETS FOR A TOTAL OF 20MG, ONCE PER DAY
     Route: 048

REACTIONS (5)
  - Sleep disorder [Unknown]
  - Adverse event [Unknown]
  - Somnolence [Unknown]
  - Extra dose administered [Unknown]
  - Fatigue [Unknown]
